FAERS Safety Report 4925304-5 (Version None)
Quarter: 2006Q1

REPORT INFORMATION
  Report Type: 
  Country: None (occurrence: None)
  Receive Date: 20060228
  Receipt Date: 20060216
  Transmission Date: 20060701
  Serious: Yes (Hospitalization)
  Sender: FDA-Public Use
  Company Number: FR-GLAXOSMITHKLINE-B0413158A

PATIENT
  Age: 79 Year
  Sex: Female

DRUGS (4)
  1. AUGMENTIN [Suspect]
     Indication: DIABETIC FOOT
     Dates: start: 20051013, end: 20051108
  2. OFLOCET [Suspect]
     Indication: DIABETIC FOOT
     Route: 048
     Dates: start: 20051013, end: 20051108
  3. PYOSTACINE [Concomitant]
     Indication: DIABETIC FOOT
     Route: 065
  4. INFLUENZA VACCINE [Concomitant]
     Indication: PROPHYLAXIS
     Route: 065
     Dates: start: 20051019, end: 20051019

REACTIONS (4)
  - CUTANEOUS VASCULITIS [None]
  - LEUKOCYTOCLASTIC VASCULITIS [None]
  - PURPURA [None]
  - SKIN NECROSIS [None]
